FAERS Safety Report 7035187-8 (Version None)
Quarter: 2010Q4

REPORT INFORMATION
  Report Type: 
  Country: None (occurrence: None)
  Receive Date: 20101008
  Receipt Date: 20100829
  Transmission Date: 20110411
  Serious: No
  Sender: FDA-Public Use
  Company Number: US-BAYER-201032272NA

PATIENT
  Age: 61 Year
  Sex: Female
  Weight: 75 kg

DRUGS (3)
  1. ULTRAVIST 370 [Suspect]
     Indication: COMPUTERISED TOMOGRAM ABDOMEN
     Dosage: TOTAL DAILY DOSE: 77 ML  UNIT DOSE: 100 ML
     Route: 042
     Dates: start: 20100826, end: 20100826
  2. GASTROGRAFIN [Concomitant]
     Indication: COMPUTERISED TOMOGRAM ABDOMEN
     Route: 048
     Dates: start: 20100826, end: 20100826
  3. BENADRYL [Concomitant]
     Indication: PREMEDICATION
     Dosage: AS USED: 25 MG
     Dates: start: 20100826, end: 20100826

REACTIONS (2)
  - PRURITUS [None]
  - URTICARIA [None]
